FAERS Safety Report 6429344-9 (Version None)
Quarter: 2009Q4

REPORT INFORMATION
  Report Type: 
  Country: None (occurrence: None)
  Receive Date: 20091102
  Receipt Date: 20091016
  Transmission Date: 20100525
  Serious: Yes (Hospitalization)
  Sender: FDA-Public Use
  Company Number: 2009003185

PATIENT
  Age: 49 Year
  Sex: Female
  Weight: 83 kg

DRUGS (6)
  1. ERLOTIINIB (ELOTINIB HC1) (TABLET) (ERLOTINIB HC1) [Suspect]
     Indication: NON-SMALL CELL LUNG CANCER
     Dosage: 150 MG, QD, ORAL
     Route: 048
     Dates: start: 20090903
  2. MEGESTROL ACETATE [Concomitant]
  3. OXYCODONE HCL [Concomitant]
  4. GABAPENTIN [Concomitant]
  5. NEXIUM [Concomitant]
  6. MAGNESIUM (MAGNESIUM) [Concomitant]

REACTIONS (5)
  - BLOOD BILIRUBIN INCREASED [None]
  - FAILURE TO THRIVE [None]
  - HYPERCALCAEMIA [None]
  - HYPOPHAGIA [None]
  - WEIGHT DECREASED [None]
